FAERS Safety Report 24613807 (Version 4)
Quarter: 2024Q4

REPORT INFORMATION
  Report Type: Spontaneous
  Country: AR (occurrence: AR)
  Receive Date: 20241113
  Receipt Date: 20241220
  Transmission Date: 20250114
  Serious: No
  Sender: PFIZER
  Company Number: AR-PFIZER INC-PV202400144488

PATIENT
  Age: 6 Year
  Sex: Male

DRUGS (1)
  1. NGENLA [Suspect]
     Active Substance: SOMATROGON-GHLA
     Dosage: UNK

REACTIONS (2)
  - Needle issue [Unknown]
  - Injection site pain [Unknown]
